FAERS Safety Report 7597211-3 (Version None)
Quarter: 2011Q3

REPORT INFORMATION
  Report Type: 
  Country: None (occurrence: None)
  Receive Date: 20110708
  Receipt Date: 20100921
  Transmission Date: 20111222
  Serious: No
  Sender: FDA-Public Use
  Company Number: US-GLAXOSMITHKLINE-A0882358A

PATIENT
  Age: 66 Year
  Sex: Female

DRUGS (8)
  1. IBUPROFEN [Concomitant]
  2. CELEXA [Concomitant]
  3. STEROID [Concomitant]
  4. FLOVENT [Suspect]
     Indication: EMPHYSEMA
     Dosage: 2PUFF TWICE PER DAY
     Route: 055
     Dates: start: 20100726, end: 20100802
  5. PROTONIX [Concomitant]
  6. TRANXENE [Concomitant]
  7. ADVAIR DISKUS 100/50 [Suspect]
     Indication: EMPHYSEMA
     Route: 055
  8. SINGULAIR [Concomitant]

REACTIONS (6)
  - CHOKING SENSATION [None]
  - PRODUCTIVE COUGH [None]
  - DRUG ADMINISTRATION ERROR [None]
  - WEIGHT DECREASED [None]
  - DYSPNOEA [None]
  - PRODUCT QUALITY ISSUE [None]
